FAERS Safety Report 7198075-2 (Version None)
Quarter: 2010Q4

REPORT INFORMATION
  Report Type: 
  Country: None (occurrence: None)
  Receive Date: 20101227
  Receipt Date: 20101215
  Transmission Date: 20110411
  Serious: Yes (Hospitalization, Other)
  Sender: FDA-Public Use
  Company Number: US-JNJFOC-20100804842

PATIENT
  Sex: Female
  Weight: 72.58 kg

DRUGS (9)
  1. LEVAQUIN [Suspect]
     Indication: VIRAL INFECTION
     Route: 048
  2. LEVAQUIN [Suspect]
     Route: 048
  3. LEVAQUIN [Suspect]
     Indication: PNEUMONIA
     Route: 048
  4. LEVAQUIN [Suspect]
     Route: 048
  5. LEVAQUIN [Suspect]
     Indication: INFLUENZA
     Route: 048
  6. LEVAQUIN [Suspect]
     Route: 048
  7. LEVAQUIN [Suspect]
     Indication: NASOPHARYNGITIS
     Route: 048
  8. LEVAQUIN [Suspect]
     Route: 048
  9. LEVAQUIN [Suspect]
     Indication: ILL-DEFINED DISORDER
     Route: 042

REACTIONS (6)
  - ANXIETY [None]
  - DEPRESSION [None]
  - MENISCUS LESION [None]
  - PLANTAR FASCIITIS [None]
  - TENDON RUPTURE [None]
  - TENDONITIS [None]
